FAERS Safety Report 5344057-2 (Version None)
Quarter: 2007Q2

REPORT INFORMATION
  Report Type: 
  Country: None (occurrence: None)
  Receive Date: 20070604
  Receipt Date: 20070530
  Transmission Date: 20071010
  Serious: Yes (Death)
  Sender: FDA-Public Use
  Company Number: A0653772A

PATIENT
  Age: 72 Year
  Sex: Male

DRUGS (24)
  1. ALKERAN [Suspect]
     Indication: DRUG USE FOR UNKNOWN INDICATION
     Route: 048
  2. PREDNISONE TAB [Suspect]
     Dosage: 125MG PER DAY
     Route: 065
  3. ADALAT [Concomitant]
     Route: 065
  4. ATENOLOL [Concomitant]
     Route: 065
  5. COLACE [Concomitant]
  6. DAPSONE [Concomitant]
  7. DEXAMETHASONE [Concomitant]
  8. DOCUSATE [Concomitant]
     Route: 065
  9. EPREX [Concomitant]
  10. GEMFIBROZIL [Concomitant]
  11. IMOVANE [Concomitant]
  12. LACTULOSE [Concomitant]
  13. LASIX [Concomitant]
     Route: 065
  14. LOPERAMIDE HCL [Concomitant]
  15. M-ESLON [Concomitant]
  16. MORPHINE [Concomitant]
     Route: 065
  17. MS CONTIN [Concomitant]
  18. OXYGEN [Concomitant]
  19. PERCOCET [Concomitant]
  20. RED BLOOD CELLS [Concomitant]
  21. RISPERDAL [Concomitant]
     Route: 065
  22. SENOKOT [Concomitant]
  23. STATEX [Concomitant]
  24. ZOPICLONE [Concomitant]

REACTIONS (20)
  - ACIDOSIS [None]
  - AGGRESSION [None]
  - ANAEMIA [None]
  - BLOOD BILIRUBIN INCREASED [None]
  - BLOOD CREATININE INCREASED [None]
  - CARDIAC ARREST [None]
  - CARDIAC FAILURE [None]
  - CONFUSIONAL STATE [None]
  - DEHYDRATION [None]
  - FALL [None]
  - HEPATIC FUNCTION ABNORMAL [None]
  - HEPATOMEGALY [None]
  - HYPOTENSION [None]
  - HYPOXIA [None]
  - LETHARGY [None]
  - PANCYTOPENIA [None]
  - PULMONARY OEDEMA [None]
  - RESPIRATORY ARREST [None]
  - SOMNOLENCE [None]
  - THROMBOCYTOPENIA [None]
